FAERS Safety Report 23852613 (Version 1)
Quarter: 2024Q2

REPORT INFORMATION
  Report Type: Spontaneous
  Country: SG (occurrence: SG)
  Receive Date: 20240514
  Receipt Date: 20240514
  Transmission Date: 20240716
  Serious: Yes (Other)
  Sender: FDA-Public Use
  Company Number: SG-ASTELLAS-2024US013495

PATIENT
  Age: 70 Year
  Sex: Male

DRUGS (1)
  1. TAMSULOSIN HYDROCHLORIDE [Suspect]
     Active Substance: TAMSULOSIN HYDROCHLORIDE
     Indication: Benign prostatic hyperplasia
     Dosage: 400 UG, QD
     Route: 065
     Dates: start: 20240307

REACTIONS (3)
  - Drug reaction with eosinophilia and systemic symptoms [Unknown]
  - Fixed eruption [Unknown]
  - Off label use [Unknown]

NARRATIVE: CASE EVENT DATE: 20240307
